FAERS Safety Report 21773924 (Version 1)
Quarter: 2022Q4

REPORT INFORMATION
  Report Type: Spontaneous
  Country: FR (occurrence: FR)
  Receive Date: 20221223
  Receipt Date: 20221223
  Transmission Date: 20230113
  Serious: Yes (Hospitalization)
  Sender: FDA-Public Use
  Company Number: None

PATIENT
  Age: 75 Year
  Sex: Male
  Weight: 108 kg

DRUGS (5)
  1. LINEZOLID [Suspect]
     Active Substance: LINEZOLID
     Indication: Infection
     Dosage: 600 MG, 2X/DAY
     Route: 048
     Dates: start: 20220221, end: 20220416
  2. KETOPROFEN [Suspect]
     Active Substance: KETOPROFEN
     Indication: Analgesic intervention supportive therapy
     Dosage: UNK
     Route: 048
     Dates: start: 20220316, end: 20220323
  3. ESIDREX [Suspect]
     Active Substance: HYDROCHLOROTHIAZIDE
     Indication: Hypertension
     Dosage: 25 MG
     Route: 048
     Dates: end: 20220323
  4. COVERAM [Suspect]
     Active Substance: AMLODIPINE\PERINDOPRIL
     Indication: Hypertension
     Dosage: 10 MG
     Route: 048
     Dates: end: 20220323
  5. RIFAMPIN SODIUM [Suspect]
     Active Substance: RIFAMPIN SODIUM
     Indication: Infection
     Dosage: 600 MG, 2X/DAY
     Route: 048
     Dates: start: 20220221, end: 20220323

REACTIONS (3)
  - Anaemia [Not Recovered/Not Resolved]
  - Acute kidney injury [Recovering/Resolving]
  - Off label use [Unknown]

NARRATIVE: CASE EVENT DATE: 20220221
